FAERS Safety Report 14452314 (Version 1)
Quarter: 2018Q1

REPORT INFORMATION
  Report Type: Spontaneous
  Country: KZ (occurrence: KZ)
  Receive Date: 20180129
  Receipt Date: 20180129
  Transmission Date: 20180509
  Serious: Yes (Life-Threatening, Hospitalization)
  Sender: FDA-Public Use
  Company Number: KZ-JNJFOC-20180126937

PATIENT
  Sex: Female
  Weight: 52 kg

DRUGS (4)
  1. LINEZOLID. [Suspect]
     Active Substance: LINEZOLID
     Indication: TUBERCULOSIS
     Route: 065
     Dates: start: 20160131
  2. BEDAQUILINE [Suspect]
     Active Substance: BEDAQUILINE
     Indication: TUBERCULOSIS
     Dosage: (400) 200 MG
     Route: 048
     Dates: start: 20160131
  3. CYCLOSERINE. [Suspect]
     Active Substance: CYCLOSERINE
     Indication: TUBERCULOSIS
     Route: 065
     Dates: start: 20160131
  4. LEVOFLOXACIN. [Suspect]
     Active Substance: LEVOFLOXACIN
     Indication: TUBERCULOSIS
     Route: 065
     Dates: start: 20160131

REACTIONS (1)
  - Bone marrow failure [Not Recovered/Not Resolved]

NARRATIVE: CASE EVENT DATE: 2017
